FAERS Safety Report 11431683 (Version 2)
Quarter: 2015Q3

REPORT INFORMATION
  Report Type: Spontaneous
  Country: US (occurrence: US)
  Receive Date: 20150828
  Receipt Date: 20150925
  Transmission Date: 20151125
  Serious: No
  Sender: FDA-Public Use
  Company Number: US-PFIZER INC-2015274294

PATIENT
  Age: 74 Year
  Sex: Male
  Weight: 61.22 kg

DRUGS (2)
  1. SUTENT [Suspect]
     Active Substance: SUNITINIB MALATE
     Indication: PANCREATIC NEUROENDOCRINE TUMOUR
     Dosage: 37.5 MG, DAILY
     Route: 048
     Dates: start: 20150727
  2. SUTENT [Suspect]
     Active Substance: SUNITINIB MALATE
     Indication: RENAL CANCER
     Dosage: 37.5 MG, DAILY
     Route: 048
     Dates: start: 20150717

REACTIONS (3)
  - Diarrhoea [Unknown]
  - Blister [Unknown]
  - Skin papilloma [Unknown]

NARRATIVE: CASE EVENT DATE: 201507
